FAERS Safety Report 6022102-9 (Version None)
Quarter: 2008Q4

REPORT INFORMATION
  Report Type: 
  Country: None (occurrence: None)
  Receive Date: 20081229
  Receipt Date: 20081217
  Transmission Date: 20090506
  Serious: Yes (Other)
  Sender: FDA-Public Use
  Company Number: AU-PFIZER INC-2008157148

PATIENT

DRUGS (1)
  1. LYRICA [Suspect]
     Indication: BACK PAIN
     Route: 048

REACTIONS (1)
  - ASTHMA [None]
